FAERS Safety Report 19494530 (Version 1)
Quarter: 2021Q3

REPORT INFORMATION
  Report Type: Report from Study
  Country: MX (occurrence: MX)
  Receive Date: 20210705
  Receipt Date: 20210705
  Transmission Date: 20211014
  Serious: Yes (Other)
  Sender: FDA-Public Use
  Company Number: NVSC2021MX120113

PATIENT
  Age: 48 Year
  Sex: Male
  Weight: 78 kg

DRUGS (1)
  1. TASIGNA [Suspect]
     Active Substance: NILOTINIB
     Indication: CHRONIC MYELOID LEUKAEMIA
     Dosage: 400 MG, Q12H
     Route: 048
     Dates: start: 202010

REACTIONS (5)
  - Dyspnoea [Not Recovered/Not Resolved]
  - Cough [Not Recovered/Not Resolved]
  - Asthenia [Unknown]
  - Hypoxia [Unknown]
  - Movement disorder [Unknown]

NARRATIVE: CASE EVENT DATE: 20210517
